FAERS Safety Report 23740680 (Version 2)
Quarter: 2024Q2

REPORT INFORMATION
  Report Type: Report from Study
  Country: US (occurrence: US)
  Receive Date: 20240415
  Receipt Date: 20240605
  Transmission Date: 20240716
  Serious: Yes (Other)
  Sender: FDA-Public Use
  Company Number: US-UCBSA-2024017168

PATIENT
  Age: 63 Year
  Sex: Female

DRUGS (1)
  1. BIMEKIZUMAB [Suspect]
     Active Substance: BIMEKIZUMAB
     Indication: Psoriasis
     Dosage: 320 MILLIGRAM, EV 4 WEEKS
     Route: 058
     Dates: start: 20240328

REACTIONS (7)
  - Hypoaesthesia [Recovered/Resolved]
  - Paraesthesia [Recovered/Resolved]
  - Movement disorder [Recovered/Resolved]
  - Muscle rigidity [Recovered/Resolved]
  - Stomatitis [Not Recovered/Not Resolved]
  - Oral pain [Not Recovered/Not Resolved]
  - Tongue coated [Not Recovered/Not Resolved]

NARRATIVE: CASE EVENT DATE: 20240328
